FAERS Safety Report 6898770-6 (Version None)
Quarter: 2010Q3

REPORT INFORMATION
  Report Type: 
  Country: None (occurrence: None)
  Receive Date: 20100802
  Receipt Date: 20071121
  Transmission Date: 20110219
  Serious: Yes (Hospitalization, Other)
  Sender: FDA-Public Use
  Company Number: US-PFIZER INC-2007087020

PATIENT
  Sex: Female
  Weight: 114.3 kg

DRUGS (5)
  1. LYRICA [Suspect]
     Indication: BACK PAIN
     Dosage: 6 EVERY 1 DAYS
     Route: 048
     Dates: start: 20070627, end: 20070914
  2. TRAZODONE [Concomitant]
  3. METHADONE HCL [Concomitant]
  4. CYMBALTA [Concomitant]
  5. PIROXICAM [Concomitant]

REACTIONS (1)
  - PANCREATITIS [None]
